FAERS Safety Report 5149545-X (Version None)
Quarter: 2006Q4

REPORT INFORMATION
  Report Type: 
  Country: None (occurrence: None)
  Receive Date: 20061113
  Receipt Date: 20060406
  Transmission Date: 20070319
  Serious: No
  Sender: FDA-Public Use
  Company Number: US-GLAXOSMITHKLINE-A0600918A

PATIENT
  Sex: Male

DRUGS (2)
  1. COREG [Suspect]
     Indication: TACHYCARDIA
     Route: 048
  2. TENORMIN [Concomitant]

REACTIONS (1)
  - DRUG INEFFECTIVE [None]
